FAERS Safety Report 6435721-2 (Version None)
Quarter: 2009Q4

REPORT INFORMATION
  Report Type: 
  Country: None (occurrence: None)
  Receive Date: 20091110
  Receipt Date: 20080208
  Transmission Date: 20100525
  Serious: No
  Sender: FDA-Public Use
  Company Number: AECAN200800030

PATIENT
  Sex: Male

DRUGS (1)
  1. IGIVEX -          (IMMUNE GLOBULIN IV (HUMAN), CAPRYLATE/CHROMATOGRAPH [Suspect]
     Indication: AUTOIMMUNE DISORDER
     Dosage: 2 G/KG; 1X; IV
     Route: 042
     Dates: start: 20071203, end: 20071217

REACTIONS (1)
  - HAEMOLYTIC ANAEMIA [None]
